FAERS Safety Report 8495002-2 (Version None)
Quarter: 2012Q3

REPORT INFORMATION
  Report Type: 
  Country: None (occurrence: None)
  Receive Date: 20120709
  Receipt Date: 20120629
  Transmission Date: 20120928
  Serious: Yes (Other)
  Sender: FDA-Public Use
  Company Number: US-JNJFOC-20120700552

PATIENT

DRUGS (1)
  1. REMICADE [Suspect]
     Indication: PRODUCT USED FOR UNKNOWN INDICATION
     Dosage: 4 VIALS
     Route: 042
     Dates: start: 20070701

REACTIONS (1)
  - MYOCARDIAL INFARCTION [None]
